FAERS Safety Report 23024370 (Version 1)
Quarter: 2023Q4

REPORT INFORMATION
  Report Type: Spontaneous
  Country: GB (occurrence: GB)
  Receive Date: 20231004
  Receipt Date: 20231004
  Transmission Date: 20240110
  Serious: Yes (Other)
  Sender: FDA-Public Use
  Company Number: GB-MHRA-MED-202309230621128200-DRZML

PATIENT
  Age: 51 Year
  Sex: Male
  Weight: 97 kg

DRUGS (1)
  1. RAMIPRIL [Suspect]
     Active Substance: RAMIPRIL
     Indication: Blood pressure increased
     Dosage: 1.25 MILLIGRAM, AT BED TIME,NIGHTLY
     Route: 065
     Dates: start: 20230911

REACTIONS (1)
  - Heart rate [Not Recovered/Not Resolved]

NARRATIVE: CASE EVENT DATE: 20230915
